FAERS Safety Report 23410558 (Version 1)
Quarter: 2024Q1

REPORT INFORMATION
  Report Type: Spontaneous
  Country: US (occurrence: US)
  Receive Date: 20240117
  Receipt Date: 20240117
  Transmission Date: 20240410
  Serious: Yes (Hospitalization, Other)
  Sender: FDA-Public Use
  Company Number: US-RDY-LIT/USA/24/0000577

PATIENT
  Age: 81 Year
  Sex: Female

DRUGS (2)
  1. LEVOFLOXACIN [Suspect]
     Active Substance: LEVOFLOXACIN
     Indication: Ventricular tachycardia
  2. CIMETIDINE [Suspect]
     Active Substance: CIMETIDINE
     Indication: Ventricular tachycardia

REACTIONS (1)
  - Torsade de pointes [Recovered/Resolved]
